FAERS Safety Report 9690128 (Version 2)
Quarter: 2013Q4

REPORT INFORMATION
  Report Type: Spontaneous
  Country: JP (occurrence: JP)
  Receive Date: 20131115
  Receipt Date: 20131211
  Transmission Date: 20140711
  Serious: Yes (Hospitalization, Other)
  Sender: FDA-Public Use
  Company Number: PHHY2013JP130490

PATIENT
  Age: 73 Year
  Sex: Male
  Weight: 52 kg

DRUGS (7)
  1. ZOMETA [Suspect]
     Indication: METASTASES TO BONE
     Dosage: 4 MG, EVERY 4 WEEKS
     Route: 041
     Dates: start: 20121025
  2. ZOMETA [Suspect]
     Dosage: 4 MG, EVERY 4 WEEKS
     Route: 041
     Dates: start: 20121122
  3. ZOMETA [Suspect]
     Dosage: 4 MG, EVERY 4 WEEKS
     Route: 041
     Dates: start: 20121227
  4. ZOMETA [Suspect]
     Dosage: 4 MG, EVERY 4 WEEKS
     Route: 041
     Dates: start: 20130124
  5. ZOMETA [Suspect]
     Dosage: 4 MG, EVERY 4 WEEKS
     Route: 041
     Dates: start: 20130221
  6. ZOMETA [Suspect]
     Dosage: 4 MG, EVERY 4 WEEKS
     Route: 041
     Dates: start: 20130321, end: 20130321
  7. OXYCONTIN [Concomitant]
     Dosage: UNK UKN, UNK
     Dates: start: 20130117

REACTIONS (7)
  - Osteonecrosis of jaw [Recovering/Resolving]
  - Toothache [Unknown]
  - Erythema [Unknown]
  - Swelling [Unknown]
  - Pain [Unknown]
  - Soft tissue infection [Unknown]
  - Metastases to lymph nodes [Unknown]
